FAERS Safety Report 9134336 (Version 1)
Quarter: 2013Q1

REPORT INFORMATION
  Report Type: Spontaneous
  Country: US (occurrence: US)
  Receive Date: 20130304
  Receipt Date: 20130304
  Transmission Date: 20140127
  Serious: No
  Sender: FDA-Public Use
  Company Number: US-JNJFOC-20130108240

PATIENT
  Sex: Female
  Weight: 63.96 kg

DRUGS (2)
  1. INVEGA SUSTENNA [Suspect]
     Indication: BORDERLINE PERSONALITY DISORDER
     Route: 030
  2. INVEGA SUSTENNA [Suspect]
     Indication: BIPOLAR DISORDER
     Route: 030

REACTIONS (2)
  - Pain [Not Recovered/Not Resolved]
  - Injection site nodule [Not Recovered/Not Resolved]
